FAERS Safety Report 24876181 (Version 1)
Quarter: 2025Q1

REPORT INFORMATION
  Report Type: Spontaneous
  Country: PT (occurrence: PT)
  Receive Date: 20250123
  Receipt Date: 20250123
  Transmission Date: 20250408
  Serious: Yes (Other)
  Sender: CELLTRION
  Company Number: PT-CELLTRION INC.-2025PT001399

PATIENT

DRUGS (3)
  1. RITUXIMAB [Suspect]
     Active Substance: RITUXIMAB
     Indication: Sjogren^s syndrome
     Dates: start: 202008
  2. RITUXIMAB [Suspect]
     Active Substance: RITUXIMAB
     Dates: start: 202201
  3. RITUXIMAB [Suspect]
     Active Substance: RITUXIMAB
     Dates: start: 202302

REACTIONS (2)
  - Sarcoid-like reaction [Recovered/Resolved]
  - Intentional product use issue [Unknown]
